FAERS Safety Report 8455972-5 (Version None)
Quarter: 2012Q2

REPORT INFORMATION
  Report Type: 
  Country: None (occurrence: None)
  Receive Date: 20120621
  Receipt Date: 20120615
  Transmission Date: 20120825
  Serious: Yes (Hospitalization)
  Sender: FDA-Public Use
  Company Number: GB-GENZYME-CAMP-1002255

PATIENT
  Sex: Female
  Weight: 80.1 kg

DRUGS (5)
  1. METHYLPREDNISOLONE [Concomitant]
     Dosage: 1.0 G, QD
     Route: 042
     Dates: start: 20100315, end: 20100318
  2. METHYLPREDNISOLONE [Concomitant]
     Dosage: 1.0 G, QD
     Route: 042
     Dates: start: 20120321, end: 20120323
  3. REBIF [Concomitant]
     Indication: MULTIPLE SCLEROSIS
     Dosage: 44 MCG, 3X/W
     Route: 058
     Dates: start: 20090316, end: 20110301
  4. ALEMTUZUMAB [Suspect]
     Indication: MULTIPLE SCLEROSIS
     Dosage: 12 MG, QD
     Route: 042
     Dates: start: 20120321, end: 20120323
  5. METHYLPREDNISOLONE [Concomitant]
     Indication: MULTIPLE SCLEROSIS
     Dosage: 1.0 G, QD
     Route: 042
     Dates: start: 20090316, end: 20090318

REACTIONS (3)
  - CHEST PAIN [None]
  - RASH GENERALISED [None]
  - INFUSION RELATED REACTION [None]
